FAERS Safety Report 19729256 (Version 1)
Quarter: 2021Q3

REPORT INFORMATION
  Report Type: Spontaneous
  Country: US (occurrence: US)
  Receive Date: 20210820
  Receipt Date: 20210820
  Transmission Date: 20211014
  Serious: Yes (Hospitalization)
  Sender: FDA-Public Use
  Company Number: US-MALLINCKRODT PHARMACEUTICALS-T202103673

PATIENT
  Sex: Female

DRUGS (1)
  1. UVADEX [Suspect]
     Active Substance: METHOXSALEN
     Indication: GRAFT VERSUS HOST DISEASE
     Dosage: UNK (EXTRACORPOREAL)
     Route: 050

REACTIONS (3)
  - Endocarditis [Unknown]
  - Product use in unapproved indication [Not Recovered/Not Resolved]
  - Vascular device infection [Unknown]
